FAERS Safety Report 5928118-2 (Version None)
Quarter: 2008Q4

REPORT INFORMATION
  Report Type: 
  Country: None (occurrence: None)
  Receive Date: 20081022
  Receipt Date: 20081022
  Transmission Date: 20090506
  Serious: Yes (Other)
  Sender: FDA-Public Use
  Company Number: None

PATIENT
  Sex: Female
  Weight: 63.63 kg

DRUGS (1)
  1. CEFTRIAXONE [Suspect]
     Dosage: 1G Q24H
     Dates: start: 20081008, end: 20081012

REACTIONS (3)
  - DERMATITIS CONTACT [None]
  - DRUG ERUPTION [None]
  - RASH PAPULAR [None]
